FAERS Safety Report 22536839 (Version 1)
Quarter: 2023Q2

REPORT INFORMATION
  Report Type: Spontaneous
  Country: HR (occurrence: HR)
  Receive Date: 20230608
  Receipt Date: 20230608
  Transmission Date: 20230722
  Serious: Yes (Other)
  Sender: FDA-Public Use
  Company Number: None

PATIENT
  Age: 31 Year
  Sex: Female
  Weight: 62 kg

DRUGS (4)
  1. ACETAMINOPHEN [Suspect]
     Active Substance: ACETAMINOPHEN
     Indication: Product used for unknown indication
     Dosage: 9.5 GRAM, QD, 9.5 G PARACETAMOL (153 MG/KG)
     Route: 048
     Dates: start: 20230413, end: 20230413
  2. AZITHROMYCIN [Suspect]
     Active Substance: AZITHROMYCIN
     Indication: Product used for unknown indication
     Dosage: 1500 MILLIGRAM, QD, 1500 MG AZITROMICINA
     Route: 048
     Dates: start: 20230413, end: 20230413
  3. TRAMADOL [Suspect]
     Active Substance: TRAMADOL
     Indication: Product used for unknown indication
     Dosage: 3000 MILLIGRAM, QD, 30 TABLETS OF TRAMAL OF 100 M
     Route: 048
     Dates: start: 20230413, end: 20230413
  4. ANDOL [Suspect]
     Active Substance: ASPIRIN
     Indication: Product used for unknown indication
     Dosage: 2000 MILLIGRAM, QD, 20 TABLETS OF ANDOL OF 100 MG
     Route: 048
     Dates: start: 20230413, end: 20230413

REACTIONS (3)
  - Suicide attempt [Unknown]
  - Intentional overdose [Unknown]
  - No adverse event [Unknown]

NARRATIVE: CASE EVENT DATE: 20230413
